FAERS Safety Report 21264003 (Version 1)
Quarter: 2022Q3

REPORT INFORMATION
  Report Type: Report from Study
  Country: CN (occurrence: CN)
  Receive Date: 20220829
  Receipt Date: 20220829
  Transmission Date: 20221027
  Serious: Yes (Life-Threatening, Other)
  Sender: FDA-Public Use
  Company Number: CN-BRISTOL-MYERS SQUIBB COMPANY-2022-090642

PATIENT
  Age: 57 Year
  Sex: Male

DRUGS (6)
  1. NIVOLUMAB [Suspect]
     Active Substance: NIVOLUMAB
     Indication: Lung squamous cell carcinoma stage III
     Dosage: DURATION: 2 DAYS?ON DAY 1
     Route: 065
     Dates: start: 20220722, end: 20220722
  2. NIVOLUMAB [Suspect]
     Active Substance: NIVOLUMAB
     Dosage: DURATION: 2 DAYS?ON DAY 1
     Route: 065
     Dates: start: 20220812, end: 20220812
  3. DOCETAXEL [Concomitant]
     Active Substance: DOCETAXEL
     Indication: Lung squamous cell carcinoma stage III
     Dosage: DAY 1?DURATION: 2 DAYS
     Route: 065
     Dates: start: 20220722, end: 20220722
  4. DOCETAXEL [Concomitant]
     Active Substance: DOCETAXEL
     Dosage: DAY 1?DURATION: 2 DAYS
     Route: 065
     Dates: start: 20220812, end: 20220812
  5. CISPLATIN [Concomitant]
     Active Substance: CISPLATIN
     Indication: Lung squamous cell carcinoma stage III
     Dosage: ON DAYS 1-3 ?DURATION: 6 DAYS
     Route: 065
     Dates: start: 20220722, end: 20220724
  6. CISPLATIN [Concomitant]
     Active Substance: CISPLATIN
     Dosage: ON DAYS 1-3 ?DURATION: 6 DAYS
     Route: 065
     Dates: start: 20220812, end: 20220814

REACTIONS (1)
  - Pneumonia [Not Recovered/Not Resolved]

NARRATIVE: CASE EVENT DATE: 20220815
